FAERS Safety Report 5635787-3 (Version None)
Quarter: 2008Q1

REPORT INFORMATION
  Report Type: 
  Country: None (occurrence: None)
  Receive Date: 20080221
  Receipt Date: 20080206
  Transmission Date: 20080703
  Serious: Yes (Other)
  Sender: FDA-Public Use
  Company Number: S08-IRL-00605-01

PATIENT
  Age: 35 Year
  Sex: Male

DRUGS (2)
  1. LEXAPRO [Suspect]
     Indication: PANIC DISORDER
     Dosage: 10 MG QD PO
     Route: 048
  2. XANAX [Concomitant]

REACTIONS (1)
  - URTICARIA [None]
